FAERS Safety Report 4917866-9 (Version None)
Quarter: 2006Q1

REPORT INFORMATION
  Report Type: 
  Country: None (occurrence: None)
  Receive Date: 20060214
  Receipt Date: 20060203
  Transmission Date: 20060701
  Serious: Yes (Other)
  Sender: FDA-Public Use
  Company Number: 200610526GDS

PATIENT
  Age: 20 Year
  Sex: Female

DRUGS (8)
  1. CIPROFLOXACIN [Suspect]
     Dosage: 400 MG, BID, INTRAVENOUS
     Route: 042
  2. MERREM [Suspect]
     Dosage: 1 G, TID, INTRAVENOUS
     Route: 042
  3. COTAZYM [Concomitant]
  4. FLOVENT [Concomitant]
  5. OMEPRAZOLE [Concomitant]
  6. SALBUTAMOL [Concomitant]
  7. TOBRAMYCIN [Concomitant]
  8. URSO FALK [Concomitant]

REACTIONS (1)
  - HEPATITIS [None]
